FAERS Safety Report 7281370-6 (Version None)
Quarter: 2011Q1

REPORT INFORMATION
  Report Type: 
  Country: None (occurrence: None)
  Receive Date: 20110203
  Receipt Date: 20110203
  Transmission Date: 20110831
  Serious: No
  Sender: FDA-Public Use
  Company Number: None

PATIENT
  Age: 48 Year
  Sex: Female
  Weight: 58.9676 kg

DRUGS (1)
  1. CIPRO [Suspect]
     Indication: URINARY TRACT INFECTION
     Dosage: 1 PILL A DAY 5 DAYS PO
     Route: 048
     Dates: start: 20090129, end: 20090202

REACTIONS (31)
  - ABNORMAL DREAMS [None]
  - ASTHENIA [None]
  - PAIN IN EXTREMITY [None]
  - MUSCLE SPASMS [None]
  - SKIN ULCER [None]
  - ABASIA [None]
  - TENDONITIS [None]
  - MOTOR DYSFUNCTION [None]
  - TREMOR [None]
  - ARTHROPATHY [None]
  - ANXIETY [None]
  - MUSCULOSKELETAL STIFFNESS [None]
  - DYSSTASIA [None]
  - TOXICITY TO VARIOUS AGENTS [None]
  - INSOMNIA [None]
  - EPICONDYLITIS [None]
  - JOINT CREPITATION [None]
  - DRUG INTOLERANCE [None]
  - SPEECH DISORDER [None]
  - TINNITUS [None]
  - AGITATION [None]
  - UNEVALUABLE EVENT [None]
  - PAIN [None]
  - EYE PAIN [None]
  - IMPAIRED DRIVING ABILITY [None]
  - ARTHRALGIA [None]
  - MUSCLE TIGHTNESS [None]
  - CONTUSION [None]
  - AMNESIA [None]
  - GAIT DISTURBANCE [None]
  - URTICARIA [None]
